FAERS Safety Report 11437353 (Version 1)
Quarter: 2015Q3

REPORT INFORMATION
  Report Type: Spontaneous
  Country: US (occurrence: US)
  Receive Date: 20150821
  Receipt Date: 20150821
  Transmission Date: 20151125
  Serious: No
  Sender: FDA-Public Use
  Company Number: US-ELI_LILLY_AND_COMPANY-US200704003036

PATIENT
  Sex: Female

DRUGS (4)
  1. CYMBALTA [Suspect]
     Active Substance: DULOXETINE HYDROCHLORIDE
     Dosage: 60 MG, DAILY (1/D)
     Route: 048
     Dates: start: 2006, end: 200703
  2. ATENOLOL. [Concomitant]
     Active Substance: ATENOLOL
     Dosage: 25 MG, UNK
  3. TRIAMTEREN HCT [Concomitant]
  4. REQUIP [Concomitant]
     Active Substance: ROPINIROLE HYDROCHLORIDE
     Dosage: 0.5 MG, UNK

REACTIONS (6)
  - Crying [Unknown]
  - Dizziness [Unknown]
  - Hyperhidrosis [Not Recovered/Not Resolved]
  - Viral infection [Unknown]
  - Nausea [Unknown]
  - Drug withdrawal syndrome [Unknown]

NARRATIVE: CASE EVENT DATE: 2007
